FAERS Safety Report 17942587 (Version 1)
Quarter: 2020Q2

REPORT INFORMATION
  Report Type: Spontaneous
  Country: CH (occurrence: US)
  Receive Date: 20200625
  Receipt Date: 20200625
  Transmission Date: 20200714
  Serious: Yes (Hospitalization)
  Sender: FDA-Public Use
  Company Number: US-ASTELLAS-2020US021255

PATIENT
  Age: 66 Year
  Sex: Male

DRUGS (3)
  1. AMPHOTERICIN B. [Concomitant]
     Active Substance: AMPHOTERICIN B
     Indication: PULMONARY MUCORMYCOSIS
     Route: 065
  2. ISAVUCONAZOLE [Suspect]
     Active Substance: ISAVUCONAZOLE
     Indication: PULMONARY MUCORMYCOSIS
     Route: 048
  3. VORICONAZOLE. [Concomitant]
     Active Substance: VORICONAZOLE
     Indication: MUCORMYCOSIS
     Dosage: UNK UNK, UNKNOWN FREQ.
     Route: 065

REACTIONS (1)
  - Pleural effusion [Recovering/Resolving]
